FAERS Safety Report 10042624 (Version 1)
Quarter: 2014Q1

REPORT INFORMATION
  Report Type: Spontaneous
  Country: JP (occurrence: JP)
  Receive Date: 20140327
  Receipt Date: 20140327
  Transmission Date: 20141002
  Serious: Yes (Hospitalization)
  Sender: FDA-Public Use
  Company Number: PHJP2014JP000656

PATIENT
  Age: 58 Year
  Sex: Male

DRUGS (1)
  1. CARBAMAZEPINE [Suspect]
     Indication: EPILEPSY
     Dosage: 53 DF (200 MG TABLETS)
     Route: 048

REACTIONS (11)
  - Suicide attempt [Unknown]
  - Toxicity to various agents [Unknown]
  - Electrocardiogram P wave abnormal [Unknown]
  - Electrocardiogram T wave abnormal [Unknown]
  - Anticonvulsant drug level increased [Recovering/Resolving]
  - Bradycardia [Unknown]
  - Hyperkalaemia [Recovering/Resolving]
  - Coma scale abnormal [Unknown]
  - Renal impairment [Unknown]
  - Urine output decreased [Unknown]
  - Overdose [Unknown]
